FAERS Safety Report 8839913 (Version 2)
Quarter: 2012Q4

REPORT INFORMATION
  Report Type: 
  Country: MX (occurrence: MX)
  Receive Date: 20121015
  Receipt Date: 20121111
  Transmission Date: 20130627
  Serious: Yes (Other)
  Sender: FDA-Public Use
  Company Number: PHHY2012MX090619

PATIENT
  Age: 26 Year
  Sex: Female
  Weight: 68 kg

DRUGS (5)
  1. TRILEPTAL [Suspect]
     Indication: ATTENTION DEFICIT/HYPERACTIVITY DISORDER
     Dosage: 300 mg, BID
     Dates: start: 201107, end: 20120701
  2. CALCIUM [Concomitant]
     Dosage: 1 DF, daily
     Dates: start: 20120916
  3. FOLIC ACID [Concomitant]
     Dates: start: 20121008
  4. IRON [Concomitant]
     Dates: start: 20121008
  5. POSTURE D                          /00207901/ [Concomitant]
     Dates: start: 201208

REACTIONS (7)
  - Abortion threatened [Not Recovered/Not Resolved]
  - Haemorrhage in pregnancy [Not Recovered/Not Resolved]
  - Urinary tract infection [Unknown]
  - Dysuria [Unknown]
  - Brucellosis [Recovered/Resolved]
  - Rash generalised [Recovered/Resolved]
  - Exposure during pregnancy [Not Recovered/Not Resolved]
